FAERS Safety Report 17494390 (Version 1)
Quarter: 2020Q1

REPORT INFORMATION
  Report Type: Spontaneous
  Country: US (occurrence: US)
  Receive Date: 20200303
  Receipt Date: 20200303
  Transmission Date: 20200409
  Serious: No
  Sender: FDA-Public Use
  Company Number: US-AMNEAL PHARMACEUTICALS-2019-IPXL-00808

PATIENT
  Sex: Female
  Weight: 68 kg

DRUGS (4)
  1. ATIVAN [Concomitant]
     Active Substance: LORAZEPAM
     Indication: ANXIETY
     Dosage: UNK
     Route: 065
  2. PROZAC [Concomitant]
     Active Substance: FLUOXETINE HYDROCHLORIDE
     Indication: DEPRESSION
     Dosage: UNK
     Route: 065
  3. RYTARY [Suspect]
     Active Substance: CARBIDOPA\LEVODOPA
     Dosage: 4 CAPSULES 4 TIMES DAILY
     Route: 048
     Dates: start: 20190320
  4. RYTARY [Suspect]
     Active Substance: CARBIDOPA\LEVODOPA
     Indication: PARKINSON^S DISEASE
     Dosage: 3 CAPSULES 4 TIMES DAILY
     Route: 048

REACTIONS (10)
  - Visual impairment [Unknown]
  - Hypotension [Not Recovered/Not Resolved]
  - Hallucination [Recovered/Resolved]
  - Akinesia [Recovered/Resolved]
  - Fatigue [Not Recovered/Not Resolved]
  - Dizziness [Recovered/Resolved]
  - Amnesia [Unknown]
  - Somnolence [Unknown]
  - Tremor [Recovered/Resolved]
  - Abnormal dreams [Not Recovered/Not Resolved]
